FAERS Safety Report 5269336-9 (Version None)
Quarter: 2007Q1

REPORT INFORMATION
  Report Type: 
  Country: None (occurrence: None)
  Receive Date: 20070319
  Receipt Date: 20070307
  Transmission Date: 20070707
  Serious: Yes (Death, Hospitalization, Other)
  Sender: FDA-Public Use
  Company Number: US-PFIZER INC-2007018134

PATIENT
  Sex: Male
  Weight: 70.3 kg

DRUGS (1)
  1. CELEBREX [Suspect]
     Indication: ARTHRITIS
     Dates: start: 19990401, end: 20010715

REACTIONS (2)
  - DEATH [None]
  - MYOCARDIAL INFARCTION [None]
